FAERS Safety Report 9455403 (Version 1)
Quarter: 2013Q3

REPORT INFORMATION
  Report Type: Spontaneous
  Country: BR (occurrence: BR)
  Receive Date: 20130813
  Receipt Date: 20130813
  Transmission Date: 20140515
  Serious: Yes (Hospitalization, Other)
  Sender: FDA-Public Use
  Company Number: PHHY2013BR086317

PATIENT
  Sex: Female
  Weight: 81 kg

DRUGS (3)
  1. DIOVAN [Suspect]
     Indication: HYPERTENSION
     Dosage: 320 MG, QD
     Route: 048
  2. GLUCOSAMINE [Concomitant]
     Indication: ARTHRITIS
     Dosage: 1 DF, DAILY
     Route: 048
  3. PANTOPRAZOLE [Concomitant]
     Indication: ARTHRITIS
     Dosage: 1 DF, (40 MG) DAILY IN FASTING
     Route: 048

REACTIONS (4)
  - Breast cancer [Unknown]
  - Blood pressure decreased [Recovered/Resolved]
  - Radiation skin injury [Recovering/Resolving]
  - Blood pressure increased [Recovering/Resolving]
